FAERS Safety Report 5022605-X (Version None)
Quarter: 2006Q2

REPORT INFORMATION
  Report Type: 
  Country: None (occurrence: None)
  Receive Date: 20060605
  Receipt Date: 20060519
  Transmission Date: 20061013
  Serious: Yes (Other)
  Sender: FDA-Public Use
  Company Number: CA200605001294

PATIENT
  Age: 52 Year
  Sex: Male

DRUGS (9)
  1. ZYPREXA [Suspect]
     Indication: BIPOLAR DISORDER
     Dosage: 5 + 7.5 MG
     Dates: start: 20060101, end: 20060101
  2. ZYPREXA [Suspect]
     Indication: BIPOLAR DISORDER
     Dosage: 5 + 7.5 MG
     Dates: start: 20060101
  3. VALPROIC ACID [Concomitant]
  4. LEVOTHYROXINE SODIUM [Concomitant]
  5. LOPID [Concomitant]
  6. LASIX [Concomitant]
  7. SINGULAIR ^MERCK FROSST^ (MONTELUKAST SODIUM) [Concomitant]
  8. MULTIVITAMINS (ASCORBIC ACID, EROGOCALCIFEROL, FOLIC ACID, NICOTINAMID [Concomitant]
  9. CYANOCOMBALAMINE-TANNIN COMPLEX (CYANOCOBALAMIN-TANNIN COMPLEX) [Concomitant]

REACTIONS (8)
  - ANOREXIA [None]
  - ASTHENIA [None]
  - BLOOD CREATININE INCREASED [None]
  - DIABETES MELLITUS NON-INSULIN-DEPENDENT [None]
  - FATIGUE [None]
  - HYPERSOMNIA [None]
  - PERNICIOUS ANAEMIA [None]
  - RENAL DISORDER [None]
